FAERS Safety Report 20144915 (Version 1)
Quarter: 2021Q4

REPORT INFORMATION
  Report Type: Spontaneous
  Country: US (occurrence: None)
  Receive Date: 20211202
  Receipt Date: 20211202
  Transmission Date: 20220303
  Serious: No
  Sender: FDA-Public Use
  Company Number: None

PATIENT
  Age: 68 Year
  Sex: Male
  Weight: 143 kg

DRUGS (2)
  1. WARFARIN [Suspect]
     Active Substance: WARFARIN
     Indication: Atrial fibrillation
     Dosage: FREQUENCY : DAILY;?
     Route: 048
  2. AMIODARONE [Concomitant]
     Active Substance: AMIODARONE
     Dates: start: 20130809

REACTIONS (6)
  - Product monitoring error [None]
  - Product communication issue [None]
  - Incorrect dose administered [None]
  - Anticoagulation drug level above therapeutic [None]
  - Laboratory test interference [None]
  - Therapy interrupted [None]

NARRATIVE: CASE EVENT DATE: 20211124
